FAERS Safety Report 6616096-2 (Version None)
Quarter: 2010Q1

REPORT INFORMATION
  Report Type: 
  Country: None (occurrence: None)
  Receive Date: 20100305
  Receipt Date: 20100301
  Transmission Date: 20100710
  Serious: Yes (Other)
  Sender: FDA-Public Use
  Company Number: US-MERCK-1003USA00175

PATIENT
  Sex: Female

DRUGS (1)
  1. FOSAMAX [Suspect]
     Route: 048
     Dates: start: 20070127

REACTIONS (7)
  - ADVERSE EVENT [None]
  - BONE DENSITY DECREASED [None]
  - JAW DISORDER [None]
  - LOOSE TOOTH [None]
  - ORAL PAIN [None]
  - TOOTH DISORDER [None]
  - TOOTH LOSS [None]
